FAERS Safety Report 5373933-X (Version None)
Quarter: 2007Q2

REPORT INFORMATION
  Report Type: 
  Country: None (occurrence: None)
  Receive Date: 20070628
  Receipt Date: 20070620
  Transmission Date: 20071010
  Serious: Yes (Death)
  Sender: FDA-Public Use
  Company Number: CL-ELI_LILLY_AND_COMPANY-CL200706000989

PATIENT
  Age: 13 Year
  Sex: Male

DRUGS (6)
  1. ZYPREXA [Suspect]
     Indication: DEPRESSION
     Dosage: 10 MG, 2/D
     Route: 048
     Dates: end: 20061117
  2. ZYPREXA [Suspect]
     Dosage: 5 MG, 2/D
     Route: 048
     Dates: start: 20060823
  3. SERTRALINE [Concomitant]
     Indication: DEPRESSION
     Dosage: 200 MG, DAILY (1/D)
     Route: 065
     Dates: end: 20061117
  4. SERTRALINE [Concomitant]
     Dosage: 100 MG, DAILY (1/D)
     Route: 065
     Dates: start: 20060823
  5. CLONAZEPAM [Concomitant]
     Indication: DEPRESSION
     Dosage: 2 MG, DAILY (1/D) BEFORE GOING TO BED
     Route: 065
     Dates: end: 20061117
  6. CLONAZEPAM [Concomitant]
     Dosage: 0.5 MG, DAILY (1/D) BEFORE GOING TO BED
     Route: 065
     Dates: start: 20060823

REACTIONS (6)
  - AGGRESSION [None]
  - COMPLETED SUICIDE [None]
  - IRRITABILITY [None]
  - SUICIDAL IDEATION [None]
  - SWELLING FACE [None]
  - WEIGHT INCREASED [None]
